FAERS Safety Report 16728806 (Version 1)
Quarter: 2019Q3

REPORT INFORMATION
  Report Type: Report from Study
  Country: ES (occurrence: ES)
  Receive Date: 20190822
  Receipt Date: 20190822
  Transmission Date: 20191005
  Serious: Yes (Hospitalization)
  Sender: FDA-Public Use
  Company Number: ES-TEVA-2019-ES-1094728

PATIENT
  Age: 86 Year
  Sex: Female

DRUGS (6)
  1. ATORVASTATINA (7400A) [Suspect]
     Active Substance: ATORVASTATIN
     Indication: DYSLIPIDAEMIA
     Dosage: 20 MG
     Route: 048
     Dates: start: 20130103
  2. ALDOCUMAR 10 MG COMPRIMIDOS, 40 COMPRIMIDOS [Interacting]
     Active Substance: WARFARIN SODIUM
     Indication: ATRIAL FIBRILLATION
     Dosage: 10 MG
     Route: 048
     Dates: start: 20111209, end: 20190502
  3. ADIRO 100 MG COMPRIMIDOS GASTRORRESISTENTES EFG, 30 COMPRIMIDOS (POLIP [Interacting]
     Active Substance: ASPIRIN
     Indication: ACUTE MYOCARDIAL INFARCTION
     Dosage: 100 MG
     Route: 048
     Dates: start: 20121120, end: 20190502
  4. BISOPROLOL (2328A) [Concomitant]
     Active Substance: BISOPROLOL
     Indication: CARDIAC FAILURE CONGESTIVE
     Route: 048
     Dates: start: 20130712
  5. JENTADUETO 2,5 MG/ 1000 MG COMPRIMIDOS RECUBIERTOS CON PELICULA, 60 CO [Concomitant]
     Indication: DIABETES MELLITUS
     Dosage: 2.5  MG
     Route: 048
     Dates: start: 20140926, end: 20190502
  6. MIXTARD 30 100 UI/ML SUSPENSION INYECTABLE EN UN VIAL,  1 VIAL DE 10 M [Concomitant]
     Indication: DIABETES MELLITUS
     Dosage: 72 IU
     Route: 058
     Dates: start: 20170424, end: 20190502

REACTIONS (2)
  - Drug interaction [Unknown]
  - Lower gastrointestinal haemorrhage [Recovered/Resolved]

NARRATIVE: CASE EVENT DATE: 20190501
